FAERS Safety Report 15153041 (Version 1)
Quarter: 2018Q3

REPORT INFORMATION
  Report Type: Spontaneous
  Country: US (occurrence: US)
  Receive Date: 20180717
  Receipt Date: 20180717
  Transmission Date: 20181010
  Serious: No
  Sender: FDA-Public Use
  Company Number: US-PFIZER INC-2018285836

PATIENT
  Age: 38 Year
  Sex: Female

DRUGS (1)
  1. SOMAVERT [Suspect]
     Active Substance: PEGVISOMANT
     Dosage: 20 MG, DAILY
     Dates: start: 20180524

REACTIONS (9)
  - Insomnia [Unknown]
  - Headache [Unknown]
  - Hyperhidrosis [Unknown]
  - Alopecia [Unknown]
  - Hirsutism [Not Recovered/Not Resolved]
  - Pain in jaw [Unknown]
  - Arthralgia [Unknown]
  - Anxiety [Unknown]
  - Temperature intolerance [Unknown]
